FAERS Safety Report 7321831-4 (Version None)
Quarter: 2011Q1

REPORT INFORMATION
  Report Type: 
  Country: None (occurrence: None)
  Receive Date: 20110228
  Receipt Date: 20110215
  Transmission Date: 20110831
  Serious: Yes (Life-Threatening)
  Sender: FDA-Public Use
  Company Number: PHHY2011GB14979

PATIENT
  Age: 60 Year
  Sex: Female
  Weight: 90 kg

DRUGS (6)
  1. BENDROFLUAZIDE [Concomitant]
  2. PROPOFOL [Concomitant]
  3. MIDAZOLAM HCL [Concomitant]
  4. RAMIPRIL [Concomitant]
  5. AMOXICILLIN-CLAVULANIC ACID [Suspect]
     Dosage: 1.2 G, DAILY
     Route: 042
     Dates: start: 20110128
  6. FENTANYL [Concomitant]

REACTIONS (2)
  - BRONCHOSPASM [None]
  - HYPOTENSION [None]
